FAERS Safety Report 12931014 (Version 1)
Quarter: 2016Q4

REPORT INFORMATION
  Report Type: Spontaneous
  Country: US (occurrence: US)
  Receive Date: 20161110
  Receipt Date: 20161110
  Transmission Date: 20170207
  Serious: No
  Sender: FDA-Public Use
  Company Number: US-JAZZ-2016-US-017724

PATIENT
  Sex: Female

DRUGS (18)
  1. DICYCLOMINE [Concomitant]
     Active Substance: DICYCLOMINE HYDROCHLORIDE
  2. LORATADINE. [Concomitant]
     Active Substance: LORATADINE
  3. NYSTATIN. [Concomitant]
     Active Substance: NYSTATIN
  4. ZOLOFT [Concomitant]
     Active Substance: SERTRALINE HYDROCHLORIDE
  5. PROBIOTIC COMPLEX [Concomitant]
  6. PROVIGIL [Concomitant]
     Active Substance: MODAFINIL
  7. EVENING PRIMROSE OIL [Concomitant]
     Active Substance: EVENING PRIMROSE OIL
  8. VITAMIN D [Concomitant]
     Active Substance: CHOLECALCIFEROL
  9. ADDERALL [Concomitant]
     Active Substance: AMPHETAMINE ASPARTATE\AMPHETAMINE SULFATE\DEXTROAMPHETAMINE SACCHARATE\DEXTROAMPHETAMINE SULFATE
  10. XYREM [Suspect]
     Active Substance: SODIUM OXYBATE
     Indication: NARCOLEPSY
     Dosage: 3 G, BID
     Route: 048
     Dates: start: 201511, end: 201511
  11. FERROUS SULFATE. [Concomitant]
     Active Substance: FERROUS SULFATE
  12. AMITIZA [Concomitant]
     Active Substance: LUBIPROSTONE
  13. FLAXSEED [Concomitant]
     Active Substance: FLAX SEED
  14. VITAMIN B [Concomitant]
     Active Substance: VITAMIN B
  15. VITAMIN C [Concomitant]
     Active Substance: ASCORBIC ACID
  16. EPIPEN [Concomitant]
     Active Substance: EPINEPHRINE
  17. XYREM [Suspect]
     Active Substance: SODIUM OXYBATE
     Dosage: 4 G, BID
     Route: 048
     Dates: start: 201604
  18. ZYRTEC [Concomitant]
     Active Substance: CETIRIZINE HYDROCHLORIDE

REACTIONS (2)
  - Therapeutic response unexpected [Unknown]
  - Pre-existing condition improved [Unknown]
